FAERS Safety Report 5056080-6 (Version None)
Quarter: 2006Q3

REPORT INFORMATION
  Report Type: 
  Country: None (occurrence: None)
  Receive Date: 20060718
  Receipt Date: 20060718
  Transmission Date: 20061208
  Serious: Yes (Life-Threatening, Hospitalization)
  Sender: FDA-Public Use
  Company Number: None

PATIENT
  Age: 68 Year
  Sex: Male
  Weight: 116.1208 kg

DRUGS (12)
  1. ERLOTINIB [Suspect]
     Indication: RENAL CELL CARCINOMA STAGE UNSPECIFIED
     Dosage: 100 MG P.O. DAILY
     Route: 048
     Dates: start: 20040909, end: 20060703
  2. RHUMAB VEG-F [Suspect]
     Indication: RENAL CELL CARCINOMA STAGE UNSPECIFIED
     Dosage: SEE IMAGE
     Route: 042
     Dates: start: 20040909, end: 20060629
  3. ASPIRIN [Concomitant]
  4. METAMUCIL [Concomitant]
  5. HUMULIN 70/30 [Concomitant]
  6. HUMULIN R SLIDING SCALE [Concomitant]
  7. RYTHMOL [Concomitant]
  8. ZOCOR [Concomitant]
  9. ENOXAPARIN SODIUM [Concomitant]
  10. LEVAQUIN [Concomitant]
  11. ALLOPURINOL [Concomitant]
  12. ZELNORM [Concomitant]

REACTIONS (4)
  - ABDOMINAL PAIN [None]
  - BLOOD PRESSURE SYSTOLIC DECREASED [None]
  - DIVERTICULITIS [None]
  - HYPOTENSION [None]
